FAERS Safety Report 6593778-2 (Version None)
Quarter: 2010Q1

REPORT INFORMATION
  Report Type: 
  Country: None (occurrence: None)
  Receive Date: 20100212
  Receipt Date: 20100128
  Transmission Date: 20100710
  Serious: Yes (Life-Threatening)
  Sender: FDA-Public Use
  Company Number: AE-2008-056

PATIENT
  Age: 76 Year
  Sex: Male

DRUGS (7)
  1. METFORMIN HYDROCHLORIDE [Suspect]
     Indication: TYPE 2 DIABETES MELLITUS
     Dosage: 100MG, BID, ORAL
     Route: 048
     Dates: start: 20071201, end: 20081126
  2. GLIMEPIRIDE [Suspect]
     Indication: TYPE 2 DIABETES MELLITUS
     Dosage: 1MG, QD, ORAL
     Route: 048
     Dates: start: 20071201, end: 20081126
  3. ACETYLSALICYLIC ACID [Suspect]
     Indication: PROPHYLAXIS
     Dosage: 100MG, QD, ORAL
     Route: 048
     Dates: end: 20081126
  4. RAMIPRIL [Suspect]
     Dosage: 2.5 MG, QD, ORAL
  5. FLUVASTATIN [Suspect]
     Indication: HYPERCHOLESTEROLAEMIA
     Dosage: 80 MG, QD, ORAL
     Route: 048
     Dates: end: 20081125
  6. METOPROLOL TARTRATE [Concomitant]
  7. LEVOTHYROXINE [Concomitant]

REACTIONS (8)
  - BLOOD GLUCOSE INCREASED [None]
  - CONTINUOUS HAEMODIAFILTRATION [None]
  - FALL [None]
  - HYPOGLYCAEMIA [None]
  - LOSS OF CONSCIOUSNESS [None]
  - RENAL FAILURE ACUTE [None]
  - RHABDOMYOLYSIS [None]
  - TREMOR [None]
